FAERS Safety Report 9065557 (Version 1)
Quarter: 2013Q1

REPORT INFORMATION
  Report Type: Report from Study
  Country: US (occurrence: US)
  Receive Date: 20130131
  Receipt Date: 20130131
  Transmission Date: 20140127
  Serious: No
  Sender: FDA-Public Use
  Company Number: US-ABBOTT-12P-163-1023294-00

PATIENT
  Age: 60 None
  Sex: Female

DRUGS (2)
  1. HUMIRA [Suspect]
     Indication: RHEUMATOID ARTHRITIS
     Dates: start: 1999, end: 201206
  2. HUMIRA [Suspect]
     Dates: start: 201206

REACTIONS (7)
  - Injection site reaction [Recovered/Resolved]
  - Injection site mass [Recovered/Resolved]
  - Injection site haemorrhage [Recovered/Resolved]
  - Unevaluable event [Recovered/Resolved]
  - Injection site urticaria [Unknown]
  - Device malfunction [Unknown]
  - Incorrect dose administered [Unknown]
